FAERS Safety Report 5000837-4 (Version None)
Quarter: 2006Q2

REPORT INFORMATION
  Report Type: 
  Country: None (occurrence: None)
  Receive Date: 20060512
  Receipt Date: 20050309
  Transmission Date: 20061013
  Serious: Yes (Hospitalization, Disabling)
  Sender: FDA-Public Use
  Company Number: US-MERCK-0503USA01976

PATIENT
  Age: 60 Year
  Sex: Female
  Weight: 86 kg

DRUGS (10)
  1. VIOXX [Suspect]
     Indication: OSTEOARTHRITIS
     Route: 048
     Dates: start: 20030701, end: 20030930
  2. VIOXX [Suspect]
     Route: 048
     Dates: start: 20030930, end: 20041005
  3. VIOXX [Suspect]
     Indication: EXOSTOSIS
     Route: 048
     Dates: start: 20030701, end: 20030930
  4. VIOXX [Suspect]
     Route: 048
     Dates: start: 20030930, end: 20041005
  5. CARTIA XT [Concomitant]
     Route: 065
  6. LOTREL [Concomitant]
     Route: 065
     Dates: start: 20010801
  7. SYNTHROID [Concomitant]
     Route: 065
     Dates: end: 20030804
  8. LORTAB [Concomitant]
     Route: 065
     Dates: start: 19990330
  9. ACETAMINOPHEN AND HYDROCODONE BITARTRATE [Concomitant]
     Route: 065
  10. IBUPROFEN [Concomitant]
     Route: 065
     Dates: start: 19981230, end: 20041230

REACTIONS (12)
  - ANGINA PECTORIS [None]
  - ANXIETY [None]
  - BACK PAIN [None]
  - BLOOD TRIGLYCERIDES INCREASED [None]
  - CEREBROVASCULAR ACCIDENT [None]
  - CORONARY ARTERY OCCLUSION [None]
  - DYSPNOEA [None]
  - FIBROADENOMA OF BREAST [None]
  - FIBROMYALGIA [None]
  - LEUKOCYTOSIS [None]
  - SYNCOPE [None]
  - TRANSIENT ISCHAEMIC ATTACK [None]
